FAERS Safety Report 10471464 (Version 2)
Quarter: 2014Q3

REPORT INFORMATION
  Report Type: Spontaneous
  Country: US (occurrence: US)
  Receive Date: 20140923
  Receipt Date: 20140923
  Transmission Date: 20150326
  Serious: Yes (Hospitalization, Other)
  Sender: FDA-Public Use
  Company Number: US-BAUSCH-SYM-2013-11871

PATIENT
  Age: 18 Year
  Sex: Female

DRUGS (1)
  1. XENAZINE [Suspect]
     Active Substance: TETRABENAZINE
     Indication: HUNTINGTON^S DISEASE
     Route: 048
     Dates: start: 201110, end: 20140620

REACTIONS (6)
  - Depression [Recovering/Resolving]
  - Suicide attempt [Recovering/Resolving]
  - Stress [Recovering/Resolving]
  - Aggression [Recovering/Resolving]
  - Anxiety [Recovering/Resolving]
  - Intentional overdose [Recovering/Resolving]

NARRATIVE: CASE EVENT DATE: 201110
